FAERS Safety Report 14783933 (Version 2)
Quarter: 2019Q3

REPORT INFORMATION
  Report Type: Spontaneous
  Country: US (occurrence: US)
  Receive Date: 20180420
  Receipt Date: 20190815
  Transmission Date: 20191004
  Serious: Yes (Other)
  Sender: FDA-Public Use
  Company Number: US-ASTRAZENECA-2018SE49371

PATIENT
  Age: 64 Year
  Sex: Male

DRUGS (14)
  1. NEXIUM 24HR [Suspect]
     Active Substance: ESOMEPRAZOLE MAGNESIUM
     Route: 048
     Dates: start: 200101, end: 201803
  2. PRILOSEC [Suspect]
     Active Substance: OMEPRAZOLE MAGNESIUM
     Indication: GASTROOESOPHAGEAL REFLUX DISEASE
     Route: 048
     Dates: start: 200101, end: 201803
  3. PRILOSEC OTC [Suspect]
     Active Substance: OMEPRAZOLE MAGNESIUM
     Route: 048
  4. NEXIUM [Suspect]
     Active Substance: ESOMEPRAZOLE MAGNESIUM
     Route: 048
     Dates: start: 200101, end: 201803
  5. DEXILANT [Suspect]
     Active Substance: DEXLANSOPRAZOLE
     Route: 048
     Dates: start: 200101, end: 201803
  6. NEXIUM [Suspect]
     Active Substance: ESOMEPRAZOLE MAGNESIUM
     Route: 048
  7. NEXIUM 24HR [Suspect]
     Active Substance: ESOMEPRAZOLE MAGNESIUM
     Route: 048
  8. PRILOSEC OTC [Suspect]
     Active Substance: OMEPRAZOLE MAGNESIUM
     Route: 048
     Dates: start: 200101, end: 201803
  9. PREVACID [Suspect]
     Active Substance: LANSOPRAZOLE
     Route: 048
     Dates: start: 200101, end: 201803
  10. PREVACID [Suspect]
     Active Substance: LANSOPRAZOLE
     Route: 048
  11. PREVACID 24 HR [Suspect]
     Active Substance: LANSOPRAZOLE
     Route: 048
     Dates: start: 200101, end: 201803
  12. PREVACID 24 HR [Suspect]
     Active Substance: LANSOPRAZOLE
     Route: 048
  13. PROTONIX [Suspect]
     Active Substance: PANTOPRAZOLE SODIUM
     Route: 048
     Dates: start: 200101, end: 201803
  14. PRILOSEC [Suspect]
     Active Substance: OMEPRAZOLE MAGNESIUM
     Indication: GASTROOESOPHAGEAL REFLUX DISEASE
     Route: 048
     Dates: start: 20010101

REACTIONS (1)
  - Chronic kidney disease [Not Recovered/Not Resolved]

NARRATIVE: CASE EVENT DATE: 2006
